FAERS Safety Report 23085650 (Version 1)
Quarter: 2023Q4

REPORT INFORMATION
  Report Type: Spontaneous
  Country: US (occurrence: US)
  Receive Date: 20231019
  Receipt Date: 20231019
  Transmission Date: 20240109
  Serious: No
  Sender: FDA-Public Use
  Company Number: US-PFIZER INC-202300328732

PATIENT
  Age: 53 Year
  Sex: Female
  Weight: 98.43 kg

DRUGS (1)
  1. NURTEC ODT [Suspect]
     Active Substance: RIMEGEPANT SULFATE
     Indication: Migraine
     Dosage: ONCE A DAY, EVERY OTHER DAY,ON THE TONGUE
     Route: 048
     Dates: start: 202310

REACTIONS (2)
  - Drug hypersensitivity [Not Recovered/Not Resolved]
  - Throat irritation [Not Recovered/Not Resolved]

NARRATIVE: CASE EVENT DATE: 20231012
